FAERS Safety Report 7144995-4 (Version None)
Quarter: 2010Q4

REPORT INFORMATION
  Report Type: 
  Country: None (occurrence: None)
  Receive Date: 20101122
  Receipt Date: 20101004
  Transmission Date: 20110411
  Serious: Yes (Life-Threatening, Hospitalization)
  Sender: FDA-Public Use
  Company Number: 2010SP060396

PATIENT
  Age: 52 Year
  Sex: Male
  Weight: 87.7257 kg

DRUGS (8)
  1. PEG-INTRON [Suspect]
     Indication: HEPATITIS C
     Dosage: 150 MCG; QW; SC
     Route: 058
     Dates: start: 20100825, end: 20101003
  2. PLACEBO [Suspect]
     Indication: HEPATITIS C
     Dosage: 4 DF; TID; PO
     Route: 048
     Dates: start: 20100922, end: 20101003
  3. RIBAVIRIN [Suspect]
     Indication: HEPATITIS C
     Dosage: 1200 MG; QD; PO
     Route: 048
     Dates: start: 20100825, end: 20101003
  4. NORVIR [Concomitant]
  5. ATAZANAVIR [Concomitant]
  6. EPZICOM [Concomitant]
  7. ASPIRIN [Concomitant]
  8. COREG CR [Concomitant]

REACTIONS (3)
  - CARDIAC ARREST [None]
  - RESPIRATORY DISTRESS [None]
  - VENTRICULAR FIBRILLATION [None]
